FAERS Safety Report 6898712-3 (Version None)
Quarter: 2010Q3

REPORT INFORMATION
  Report Type: 
  Country: None (occurrence: None)
  Receive Date: 20100802
  Receipt Date: 20071116
  Transmission Date: 20110219
  Serious: No
  Sender: FDA-Public Use
  Company Number: US-PFIZER INC-2007097213

PATIENT
  Sex: Female
  Weight: 60 kg

DRUGS (3)
  1. LYRICA [Suspect]
     Indication: NEURALGIA
  2. ADVAIR DISKUS 100/50 [Concomitant]
     Indication: ASTHMA
  3. NASACORT [Concomitant]

REACTIONS (1)
  - PARAESTHESIA [None]
